FAERS Safety Report 16006733 (Version 1)
Quarter: 2019Q1

REPORT INFORMATION
  Report Type: Report from Study
  Country: BR (occurrence: BR)
  Receive Date: 20190226
  Receipt Date: 20190226
  Transmission Date: 20190418
  Serious: Yes (Other)
  Sender: FDA-Public Use
  Company Number: BR-UCBSA-2019006719

PATIENT
  Age: 43 Year
  Sex: Female
  Weight: 74 kg

DRUGS (8)
  1. PREDNISOLONA [Concomitant]
     Active Substance: PREDNISOLONE
     Indication: RHEUMATOID ARTHRITIS
     Dosage: 20 MG, ONCE DAILY (QD)
     Route: 048
     Dates: start: 201803
  2. LORATADINE. [Concomitant]
     Active Substance: LORATADINE
     Indication: RHEUMATOID ARTHRITIS
     Dosage: 10 MG, ONCE DAILY (QD)
     Route: 048
     Dates: start: 201803
  3. CIPROFIBRATO [Concomitant]
     Active Substance: CIPROFIBRATE
     Indication: RHEUMATOID ARTHRITIS
     Dosage: 20 MG, ONCE DAILY (QD)
     Route: 048
     Dates: start: 201803
  4. METHOTREXATE (METHOTREXATE SODIUM) [Concomitant]
     Active Substance: METHOTREXATE SODIUM
     Indication: RHEUMATOID ARTHRITIS
     Dosage: 20 MG, WEEKLY (QW)
     Route: 048
     Dates: start: 201803
  5. CERTOLIZUMAB PEGOL RA [Suspect]
     Active Substance: CERTOLIZUMAB PEGOL
     Indication: RHEUMATOID ARTHRITIS
     Dosage: 400 MG, EV 2 WEEKS(QOW)
     Route: 058
     Dates: start: 2018
  6. PARACETAMOL [Concomitant]
     Active Substance: ACETAMINOPHEN
     Indication: GASTRIC DISORDER
     Dosage: 4 MG, WEEKLY (QW)
     Route: 048
     Dates: start: 201803, end: 201803
  7. IZONIAZID [Concomitant]
     Active Substance: ISONIAZID
     Indication: PULMONARY TUBERCULOSIS
     Dosage: 20 MG, 3X/DAY (TID)
     Route: 048
     Dates: start: 201803
  8. SIMVASTATIN. [Concomitant]
     Active Substance: SIMVASTATIN
     Indication: BLOOD CHOLESTEROL
     Dosage: 20 MG, ONCE DAILY (QD)
     Route: 048
     Dates: start: 201803

REACTIONS (8)
  - Tooth loss [Recovered/Resolved]
  - Insomnia [Not Recovered/Not Resolved]
  - Blood urine present [Recovered/Resolved]
  - Diarrhoea [Recovered/Resolved]
  - Nausea [Recovered/Resolved]
  - Headache [Recovered/Resolved]
  - Vomiting [Recovered/Resolved]
  - Blindness [Recovered/Resolved]

NARRATIVE: CASE EVENT DATE: 20181129
